FAERS Safety Report 6024368-8 (Version None)
Quarter: 2008Q4

REPORT INFORMATION
  Report Type: 
  Country: None (occurrence: None)
  Receive Date: 20081229
  Receipt Date: 20081210
  Transmission Date: 20090506
  Serious: Yes (Death)
  Sender: FDA-Public Use
  Company Number: 8040199

PATIENT
  Age: 81 Year
  Sex: Male

DRUGS (5)
  1. KEPPRA [Suspect]
     Dates: end: 20081128
  2. VIMPAT [Suspect]
     Indication: EPILEPSY
     Dosage: 100 MG 2/D IV
     Route: 042
     Dates: start: 20081126, end: 20081127
  3. VIMPAT [Suspect]
     Indication: EPILEPSY
     Dosage: 200 MG 3/D PAR
     Route: 051
     Dates: start: 20081128, end: 20081128
  4. PHENHYDAN /00017401/ [Suspect]
     Indication: EPILEPSY
     Dosage: 200 MG 3/D PAR
     Route: 051
     Dates: start: 20081121, end: 20081128
  5. PHENOBARBITAL TAB [Suspect]
     Indication: EPILEPSY
     Dosage: 100 MG 3/D IV
     Route: 042
     Dates: start: 20081124, end: 20081127

REACTIONS (1)
  - PNEUMONIA [None]
